FAERS Safety Report 9475258 (Version 4)
Quarter: 2013Q4

REPORT INFORMATION
  Report Type: Spontaneous
  Country: FR (occurrence: FR)
  Receive Date: 20130825
  Receipt Date: 20131014
  Transmission Date: 20140711
  Serious: Yes (Hospitalization, Other)
  Sender: FDA-Public Use
  Company Number: FR-PFIZER INC-2013199929

PATIENT
  Age: 68 Year
  Sex: Male
  Weight: 85 kg

DRUGS (4)
  1. TAHOR [Suspect]
     Dosage: 20 MG, DAILY
     Route: 048
     Dates: end: 20130619
  2. TAHOR [Suspect]
     Dosage: 40 MG, 2X/DAY
     Route: 048
     Dates: start: 20130619, end: 20130709
  3. HYDREA [Suspect]
     Indication: ESSENTIAL THROMBOCYTHAEMIA
     Dosage: 2000 MG (4 CAPSULES OF 500 MG), 1X/DAY (IN THE MORNING)
     Route: 048
     Dates: end: 20130709
  4. BISOPROLOL [Concomitant]
     Dosage: 1.25 MG, DAILY

REACTIONS (6)
  - Thrombocytopenia [Unknown]
  - Acute myocardial infarction [Unknown]
  - Coronary artery disease [Unknown]
  - Left ventricular dysfunction [Unknown]
  - Sinus bradycardia [Unknown]
  - Cardiac failure [Unknown]
